FAERS Safety Report 17983631 (Version 1)
Quarter: 2020Q3

REPORT INFORMATION
  Report Type: Other
  Country: DK (occurrence: DK)
  Receive Date: 20200706
  Receipt Date: 20200706
  Transmission Date: 20201103
  Serious: Yes (Other)
  Sender: FDA-Public Use
  Company Number: DK-ARBOR PHARMACEUTICALS, LLC-DK-2020ARB000509

PATIENT
  Age: 77 Year
  Sex: Male

DRUGS (6)
  1. DOLOL                              /00599201/ [Concomitant]
     Active Substance: TRAMADOL
     Indication: PAIN
     Dosage: 100 MG, 1 IN 1 D
     Route: 048
     Dates: start: 20160701, end: 20171207
  2. PINEMOL [Concomitant]
     Indication: PAIN
     Dosage: 2 TABLETS PER DAY NO MORE THAN 3 TIMES DAILY (1000 MG, AS REQUIRED)
     Route: 048
     Dates: start: 20140826
  3. AMLODIPIN KRKA [Concomitant]
     Active Substance: AMLODIPINE BESYLATE
     Indication: BLOOD PRESSURE MEASUREMENT
     Dosage: 5 MG, 1 IN 1 D
     Route: 048
     Dates: start: 20131031, end: 20180524
  4. TRIPTODUR [Suspect]
     Active Substance: TRIPTORELIN
     Indication: PROSTATE CANCER
     Dosage: 11.25 MG, 1 IN 12 WK
     Route: 030
     Dates: start: 20171205
  5. SIMVASTATIN SANDOZ [Concomitant]
     Active Substance: SIMVASTATIN
     Indication: HYPERCHOLESTEROLAEMIA
     Dosage: 40 MG, 1 IN 1 D
     Route: 048
     Dates: start: 20131031
  6. GEMADOL                            /00599202/ [Concomitant]
     Active Substance: TRAMADOL HYDROCHLORIDE
     Indication: PAIN
     Dosage: 50 MG, 1 IN 1 D
     Route: 048
     Dates: start: 20171107, end: 20171208

REACTIONS (3)
  - Immunosuppression [Not Recovered/Not Resolved]
  - Subacute cutaneous lupus erythematosus [Not Recovered/Not Resolved]
  - Rash [Not Recovered/Not Resolved]

NARRATIVE: CASE EVENT DATE: 20171208
